FAERS Safety Report 12209219 (Version 8)
Quarter: 2016Q2

REPORT INFORMATION
  Report Type: Report from Study
  Country: IE (occurrence: IE)
  Receive Date: 20160324
  Receipt Date: 20160429
  Transmission Date: 20160815
  Serious: Yes (Hospitalization)
  Sender: FDA-Public Use
  Company Number: IE-ABBVIE-15P-229-1469235-00

PATIENT
  Age: 78 Year
  Sex: Male

DRUGS (4)
  1. DUODOPA [Suspect]
     Active Substance: CARBIDOPA\LEVODOPA
     Indication: PARKINSON^S DISEASE
     Dosage: CONTINUOUS
     Route: 050
     Dates: start: 20120626, end: 20120702
  2. DUODOPA [Suspect]
     Active Substance: CARBIDOPA\LEVODOPA
     Dosage: CONTINUOUS INCREASED FROM 3.5 ML/HR TO 4 ML/HR
     Route: 050
     Dates: start: 20160324, end: 20160325
  3. DUODOPA [Suspect]
     Active Substance: CARBIDOPA\LEVODOPA
     Dosage: CONTINUOUS
     Route: 050
     Dates: start: 20120702, end: 201603
  4. DUODOPA [Suspect]
     Active Substance: CARBIDOPA\LEVODOPA
     Dosage: CD: 7AM-10PM: 4 ML/HR;CD:10PM-7AM:2ML/HR, MD:3.5ML/HR
     Route: 050
     Dates: start: 20160325

REACTIONS (19)
  - Stoma site erythema [Not Recovered/Not Resolved]
  - Stoma site irritation [Not Recovered/Not Resolved]
  - Faecaloma [Unknown]
  - Pyrexia [Not Recovered/Not Resolved]
  - Confusional state [Not Recovered/Not Resolved]
  - Disorientation [Recovering/Resolving]
  - Device dislocation [Not Recovered/Not Resolved]
  - Device dislocation [Unknown]
  - Stoma site discharge [Unknown]
  - Disorientation [Not Recovered/Not Resolved]
  - Stoma site extravasation [Not Recovered/Not Resolved]
  - Sepsis [Not Recovered/Not Resolved]
  - Stoma site pain [Recovering/Resolving]
  - Unintentional medical device removal [Not Recovered/Not Resolved]
  - Stoma site hypergranulation [Not Recovered/Not Resolved]
  - Stoma site discharge [Not Recovered/Not Resolved]
  - Stoma site extravasation [Recovering/Resolving]
  - Agitation [Recovering/Resolving]
  - Device related infection [Not Recovered/Not Resolved]

NARRATIVE: CASE EVENT DATE: 20151106
